APPROVED DRUG PRODUCT: METRONIDAZOLE
Active Ingredient: METRONIDAZOLE
Strength: 250MG
Dosage Form/Route: TABLET;ORAL
Application: N019029 | Product #001
Applicant: LNK INTERNATIONAL INC
Approved: Apr 10, 1984 | RLD: No | RS: No | Type: DISCN